FAERS Safety Report 10597955 (Version 2)
Quarter: 2014Q4

REPORT INFORMATION
  Report Type: Spontaneous
  Country: JP (occurrence: JP)
  Receive Date: 20141121
  Receipt Date: 20141202
  Transmission Date: 20150529
  Serious: Yes (Other)
  Sender: FDA-Public Use
  Company Number: JP-PFIZER INC-2014319846

PATIENT
  Age: 75 Year
  Sex: Male
  Weight: 75.9 kg

DRUGS (3)
  1. LYRICA [Suspect]
     Active Substance: PREGABALIN
     Indication: ARTHRALGIA
     Dosage: UNK
     Route: 048
     Dates: start: 20141001, end: 20141010
  2. REBAMIPIDE [Suspect]
     Active Substance: REBAMIPIDE
     Indication: ARTHRALGIA
     Dosage: UNK
     Route: 048
     Dates: start: 20141001, end: 20141010
  3. CELECOX [Concomitant]
     Active Substance: CELECOXIB
     Indication: ARTHRALGIA
     Dosage: UNK
     Route: 048
     Dates: start: 20141001

REACTIONS (1)
  - Erythema multiforme [Recovered/Resolved]

NARRATIVE: CASE EVENT DATE: 20141007
